FAERS Safety Report 9383617 (Version 1)
Quarter: 2013Q3

REPORT INFORMATION
  Report Type: Spontaneous
  Country: US (occurrence: US)
  Receive Date: 20130704
  Receipt Date: 20130704
  Transmission Date: 20140515
  Serious: No
  Sender: FDA-Public Use
  Company Number: US-PFIZER INC-2013196350

PATIENT
  Age: 65 Year
  Sex: Female

DRUGS (1)
  1. LEVOXYL [Suspect]
     Indication: THYROID HORMONE REPLACEMENT THERAPY
     Dosage: 100 UG (2 X 50 UG), 1X/DAY
     Dates: start: 1982

REACTIONS (5)
  - Product quality issue [Unknown]
  - Drug ineffective [Unknown]
  - Weight increased [Unknown]
  - Alopecia [Unknown]
  - Fatigue [Unknown]
